FAERS Safety Report 14277950 (Version 1)
Quarter: 2017Q4

REPORT INFORMATION
  Report Type: Spontaneous
  Country: US (occurrence: US)
  Receive Date: 20171212
  Receipt Date: 20171212
  Transmission Date: 20180321
  Serious: Yes (Other)
  Sender: FDA-Public Use
  Company Number: US-VIRTUS PHARMACEUTICALS, LLC-2017VTS00665

PATIENT
  Age: 25 Year
  Sex: Female

DRUGS (1)
  1. TRANEXAMIC ACID. [Suspect]
     Active Substance: TRANEXAMIC ACID
     Route: 065

REACTIONS (4)
  - Arterial thrombosis [Unknown]
  - Posterior reversible encephalopathy syndrome [Unknown]
  - Ischaemic stroke [Unknown]
  - Venous thrombosis [Unknown]
